FAERS Safety Report 8322349-2 (Version None)
Quarter: 2012Q2

REPORT INFORMATION
  Report Type: 
  Country: None (occurrence: None)
  Receive Date: 20120426
  Receipt Date: 20120411
  Transmission Date: 20120825
  Serious: Yes (Other)
  Sender: FDA-Public Use
  Company Number: 2012-00631

PATIENT
  Age: 81 Year
  Sex: Male

DRUGS (6)
  1. SIMVASTATIN [Suspect]
     Indication: BLOOD CHOLESTEROL INCREASED
     Dosage: (   , 1 IN 1 D), ORAL
     Route: 048
     Dates: start: 20040101, end: 20090802
  2. QUININE SULPHATE (QUININE) (UNKNOWN) [Concomitant]
  3. LANSOPRAZOLE [Concomitant]
  4. ACETYLSALICYLIC ACID (ASPIRIN) (UNKNOWN) [Concomitant]
  5. LISINOPRIL [Concomitant]
  6. PRAVASTATIN [Concomitant]

REACTIONS (11)
  - EYELID PTOSIS [None]
  - HYPOAESTHESIA [None]
  - MUSCLE SPASMS [None]
  - MUSCULAR WEAKNESS [None]
  - MUSCLE RIGIDITY [None]
  - SLEEP DISORDER [None]
  - MUSCULOSKELETAL STIFFNESS [None]
  - BLEPHARITIS [None]
  - CONVULSION [None]
  - SENSORY LOSS [None]
  - NEUROPATHY PERIPHERAL [None]
